FAERS Safety Report 10344687 (Version 1)
Quarter: 2014Q3

REPORT INFORMATION
  Report Type: Spontaneous
  Country: FR (occurrence: None)
  Receive Date: 20140724
  Receipt Date: 20140724
  Transmission Date: 20150326
  Serious: Yes (Hospitalization)
  Sender: FDA-Public Use
  Company Number: AUR-APL-2014-07827

PATIENT
  Age: 67 Year
  Sex: Male

DRUGS (7)
  1. TAZOCILLINE (PIPERACILLIN SODIUM, TAZOBACTAM SODIUM) [Concomitant]
  2. GENTAMICIN [Concomitant]
     Active Substance: GENTAMICIN
  3. DALACINE /00166002/ (CLINDAMYCIN HYDROCHLORIDE) [Concomitant]
  4. AMOXICILLIN. [Suspect]
     Active Substance: AMOXICILLIN
     Indication: STREPTOCOCCAL INFECTION
     Route: 048
     Dates: start: 20140429
  5. CONTRAMAL (TRAMADOL HYDROCHLORIDE) [Concomitant]
  6. BORIC ACID (BORIC ACID) [Concomitant]
  7. AUGMENTIN [Concomitant]
     Active Substance: AMOXICILLIN\CLAVULANATE POTASSIUM

REACTIONS (4)
  - Toxic encephalopathy [None]
  - Myoclonus [None]
  - Accidental overdose [None]
  - Confusional state [None]

NARRATIVE: CASE EVENT DATE: 20140509
